FAERS Safety Report 12992933 (Version 39)
Quarter: 2018Q3

REPORT INFORMATION
  Report Type: Report from Study
  Country: JP (occurrence: JP)
  Receive Date: 20161202
  Receipt Date: 20180706
  Transmission Date: 20181010
  Serious: Yes (Death, Life-Threatening, Hospitalization, Disabling, Other)
  Sender: FDA-Public Use
  Company Number: JP-ROCHE-1861644

PATIENT
  Age: 71 Year
  Sex: Male
  Weight: 74.3 kg

DRUGS (124)
  1. METOCLOPRAMIDE. [Concomitant]
     Active Substance: METOCLOPRAMIDE
     Indication: NAUSEA
     Route: 065
     Dates: start: 20161121, end: 20161121
  2. ISOTONIC SODIUM CHLORIDE SOLUTION KIT H [Concomitant]
     Route: 065
     Dates: start: 20161220, end: 20161225
  3. SODIUM BICARBONATE. [Concomitant]
     Active Substance: SODIUM BICARBONATE
     Indication: METABOLIC ACIDOSIS
     Route: 065
     Dates: start: 20161203, end: 20161203
  4. NICARDIPINE HYDROCHLORIDE. [Concomitant]
     Active Substance: NICARDIPINE HYDROCHLORIDE
     Route: 065
     Dates: start: 20161204
  5. DOPAMINE HYDROCHLORIDE. [Concomitant]
     Active Substance: DOPAMINE HYDROCHLORIDE
     Route: 065
     Dates: start: 20161205, end: 20161206
  6. ELNEOPA [Concomitant]
     Active Substance: UNSPECIFIED INGREDIENT
     Route: 065
     Dates: start: 20161208, end: 20161225
  7. KENKETU NONTHRON [Concomitant]
     Dosage: 1500 FOR INJECTION
     Route: 065
     Dates: start: 20161205, end: 20161211
  8. HUMAN SERUM ALBUMIN [Concomitant]
     Active Substance: ALBUMIN HUMAN
     Route: 065
     Dates: start: 20161206, end: 20161207
  9. HUMAN SERUM ALBUMIN [Concomitant]
     Active Substance: ALBUMIN HUMAN
     Route: 065
     Dates: start: 20161224, end: 20161224
  10. FRESH FROZEN PLASMA [Concomitant]
     Active Substance: HUMAN PLASMA
     Dosage: LEUKOCYTES REDUCED
     Route: 065
     Dates: start: 20161208, end: 20161209
  11. OMEPRAZOLE SODIUM [Concomitant]
     Active Substance: OMEPRAZOLE SODIUM
     Indication: GASTRITIS PROPHYLAXIS
     Route: 065
     Dates: start: 20161217
  12. WYSTAL [Concomitant]
     Active Substance: CEFOPERAZONE SODIUM\SULBACTAM SODIUM
     Dosage: FOR COMBINATION INTRAVENOUS
     Route: 042
     Dates: start: 20161220, end: 20161224
  13. CALCIUM GLUCONATE. [Concomitant]
     Active Substance: CALCIUM GLUCONATE
     Indication: HYPERKALAEMIA
     Dosage: CALCIUM GLUCONATE HYDRATE
     Route: 065
     Dates: start: 20161225, end: 20161226
  14. URSODEOXYCHOLIC ACID [Concomitant]
     Active Substance: URSODIOL
     Route: 065
     Dates: start: 20161230
  15. ATEZOLIZUMAB. [Suspect]
     Active Substance: ATEZOLIZUMAB
     Indication: NON-SMALL CELL LUNG CANCER STAGE IV
     Dosage: MOST RECENT DOSE ON 16/NOV/2016
     Route: 042
     Dates: start: 20161116
  16. REBAMIPIDE [Concomitant]
     Active Substance: REBAMIPIDE
     Route: 065
     Dates: start: 20161130, end: 20161201
  17. METOCLOPRAMIDE HYDROCHLORIDE. [Concomitant]
     Active Substance: METOCLOPRAMIDE HYDROCHLORIDE
     Indication: NAUSEA
     Route: 065
     Dates: start: 20161129, end: 20161202
  18. AMINOPHYLLINE. [Concomitant]
     Active Substance: AMINOPHYLLINE
     Indication: CHRONIC OBSTRUCTIVE PULMONARY DISEASE
     Route: 065
     Dates: start: 20161130, end: 20161216
  19. HEPARIN SODIUM. [Concomitant]
     Active Substance: HEPARIN SODIUM
     Route: 065
     Dates: start: 20161203
  20. MIDAZOLAM [Concomitant]
     Active Substance: MIDAZOLAM HYDROCHLORIDE
     Indication: SEDATION
     Route: 065
     Dates: start: 20161203, end: 20161203
  21. PROPOFOL. [Concomitant]
     Active Substance: PROPOFOL
     Indication: SEDATION
     Route: 065
     Dates: start: 20161203, end: 20170105
  22. FENTANYL CITRATE. [Concomitant]
     Active Substance: FENTANYL CITRATE
     Indication: SEDATION
     Route: 065
     Dates: start: 20161203, end: 20161221
  23. INSULIN [Concomitant]
     Active Substance: INSULIN NOS
     Indication: HYPERGLYCAEMIA
     Dosage: INSULIN HUMAN?GI THERAPY
     Route: 065
     Dates: start: 20161205
  24. ELNEOPA [Concomitant]
     Active Substance: UNSPECIFIED INGREDIENT
     Route: 065
     Dates: start: 20161205, end: 20161207
  25. LANDIOLOL HYDROCHLORIDE [Concomitant]
     Active Substance: LANDIOLOL HYDROCHLORIDE
     Route: 065
     Dates: start: 20161207, end: 20170102
  26. THROMBOMODULIN ALFA [Concomitant]
     Active Substance: THROMBOMODULIN ALFA
     Route: 065
     Dates: start: 20161208, end: 20161213
  27. HUMAN SERUM ALBUMIN [Concomitant]
     Active Substance: ALBUMIN HUMAN
     Route: 065
     Dates: start: 20170104, end: 20170104
  28. PALONOSETRON HYDROCHLORIDE. [Concomitant]
     Active Substance: PALONOSETRON HYDROCHLORIDE
     Indication: PROPHYLAXIS OF NAUSEA AND VOMITING
     Route: 065
     Dates: start: 20161116, end: 20161116
  29. LEUKOCYTE REDUCED RED BLOOD CELLS [Concomitant]
     Dosage: IRRADIATED
     Route: 065
     Dates: start: 20161226, end: 20161226
  30. DINOPROST [Concomitant]
     Active Substance: DINOPROST
     Route: 065
     Dates: start: 20170112
  31. SPIRONOLACTONE. [Concomitant]
     Active Substance: SPIRONOLACTONE
     Route: 065
     Dates: start: 20161216, end: 20161223
  32. LULICONAZOLE. [Concomitant]
     Active Substance: LULICONAZOLE
     Indication: TINEA CRURIS
     Route: 065
     Dates: start: 20161217, end: 20170105
  33. BUTYRIC ACID [Concomitant]
     Active Substance: BUTYRIC ACID
     Indication: DIARRHOEA
     Dosage: BUTYRIC ACID BACTERIA
     Route: 065
     Dates: start: 20161221, end: 20170111
  34. AMPHOTERICIN B. [Concomitant]
     Active Substance: AMPHOTERICIN B
     Route: 065
     Dates: start: 20170105, end: 20170106
  35. TEICOPLANIN [Concomitant]
     Active Substance: TEICOPLANIN
     Indication: BACTERAEMIA
     Route: 065
     Dates: start: 20170111
  36. OMEPRAZOLE SODIUM [Concomitant]
     Active Substance: OMEPRAZOLE SODIUM
     Route: 065
     Dates: start: 20161217
  37. URSODEOXYCHOLIC ACID [Concomitant]
     Active Substance: URSODIOL
     Indication: AUTOIMMUNE HEPATITIS
     Route: 065
     Dates: start: 20161217, end: 20161225
  38. CEFEPIME DIHYDROCHLORIDE [Concomitant]
     Active Substance: CEFEPIME HYDROCHLORIDE
     Indication: BACTERIAL INFECTION
     Route: 065
     Dates: start: 20161219, end: 20161219
  39. CARBOPLATIN. [Suspect]
     Active Substance: CARBOPLATIN
     Indication: NON-SMALL CELL LUNG CANCER STAGE IV
     Dosage: TARGET AREA UNDER THE CONCENTRATION CURVE (AUC) 6 MG/ML/MIN?MOST RECENT DOSE 652 MG ON 16/NOV/2016
     Route: 042
     Dates: start: 20161116
  40. REBAMIPIDE [Concomitant]
     Active Substance: REBAMIPIDE
     Indication: GASTRITIS PROPHYLAXIS
     Route: 065
     Dates: start: 20161006, end: 20161114
  41. PROCHLORPERAZINE MALEATE. [Concomitant]
     Active Substance: PROCHLORPERAZINE MALEATE
     Indication: NAUSEA
     Route: 065
     Dates: start: 20161122, end: 20161122
  42. DICLOFENAC SODIUM. [Concomitant]
     Active Substance: DICLOFENAC SODIUM
     Indication: PYREXIA
     Route: 065
     Dates: start: 20161202, end: 20161202
  43. MORPHINE HYDROCHLORIDE TRIHYDRATE [Concomitant]
     Active Substance: MORPHINE HYDROCHLORIDE
     Indication: SEDATION
     Route: 065
     Dates: start: 20161202, end: 20161202
  44. SOLYUGEN [Concomitant]
     Route: 065
     Dates: start: 20161208, end: 20161208
  45. SOLYUGEN [Concomitant]
     Route: 065
     Dates: start: 20161203, end: 20161203
  46. SODIUM BICARBONATE. [Concomitant]
     Active Substance: SODIUM BICARBONATE
     Indication: RESPIRATORY ACIDOSIS
     Route: 065
     Dates: start: 20161226, end: 20161226
  47. SODIUM BICARBONATE. [Concomitant]
     Active Substance: SODIUM BICARBONATE
     Indication: ACIDOSIS
     Route: 065
     Dates: start: 20170101, end: 20170104
  48. FUROSEMIDE. [Concomitant]
     Active Substance: FUROSEMIDE
     Route: 065
     Dates: start: 20161204, end: 20170102
  49. FUROSEMIDE. [Concomitant]
     Active Substance: FUROSEMIDE
     Route: 065
     Dates: start: 20161216, end: 20161225
  50. ROCURONIUM BROMIDE. [Concomitant]
     Active Substance: ROCURONIUM BROMIDE
     Indication: TRACHEOSTOMY
     Route: 065
     Dates: start: 20161222, end: 20161222
  51. SUGAMMADEX SODIUM [Concomitant]
     Active Substance: SUGAMMADEX SODIUM
     Route: 065
     Dates: start: 20161222
  52. MEROPENEM. [Concomitant]
     Active Substance: MEROPENEM
     Route: 065
     Dates: start: 20161212, end: 20161213
  53. KIDMIN [Concomitant]
     Active Substance: AMINO ACIDS\ELECTROLYTES NOS
     Route: 065
     Dates: start: 20161230
  54. DAIKENCHUTO [Concomitant]
     Active Substance: HERBALS
     Indication: CONSTIPATION
     Route: 065
     Dates: start: 20170111
  55. TRANEXAMIC ACID. [Concomitant]
     Active Substance: TRANEXAMIC ACID
     Indication: GASTROINTESTINAL HAEMORRHAGE
     Route: 065
     Dates: start: 20170116
  56. LEVOTHYROXINE SODIUM. [Concomitant]
     Active Substance: LEVOTHYROXINE SODIUM
     Indication: HYPOTHYROIDISM
     Route: 065
     Dates: start: 20170116
  57. LULICONAZOLE. [Concomitant]
     Active Substance: LULICONAZOLE
     Indication: TINEA CRURIS
     Route: 065
     Dates: start: 20161217, end: 20170105
  58. IRRADIATED RED BLOOD CELLS?LEUKOCYTES REDUCED [Concomitant]
     Active Substance: HUMAN RED BLOOD CELL
     Route: 065
     Dates: start: 20170114, end: 20170116
  59. METOCLOPRAMIDE. [Concomitant]
     Active Substance: METOCLOPRAMIDE
     Route: 065
     Dates: start: 20170115, end: 20170115
  60. ISOTONIC SODIUM CHLORIDE SOLUTION KIT H [Concomitant]
     Route: 065
     Dates: start: 20161129, end: 20161129
  61. SOLYUGEN [Concomitant]
     Route: 065
     Dates: start: 20161204, end: 20161205
  62. BUPRENORPHINE. [Concomitant]
     Active Substance: BUPRENORPHINE
     Indication: SEDATION
     Route: 065
     Dates: start: 20161203, end: 20161203
  63. HUMAN SERUM ALBUMIN [Concomitant]
     Active Substance: ALBUMIN HUMAN
     Route: 065
     Dates: start: 20161226, end: 20161226
  64. LEUKOCYTE REDUCED RED BLOOD CELLS [Concomitant]
     Indication: ANAEMIA
     Dosage: IRRADIATED
     Route: 065
     Dates: start: 20161210, end: 20161212
  65. LEUKOCYTE REDUCED RED BLOOD CELLS [Concomitant]
     Dosage: IRRADIATED
     Route: 065
     Dates: start: 20170112, end: 20170112
  66. CARBAZOCHROME SODIUM SULFONATE [Concomitant]
     Active Substance: CARBAZOCHROME SODIUM SULFONATE
     Indication: GASTROINTESTINAL HAEMORRHAGE
     Route: 065
     Dates: start: 20170116
  67. OLOPATADINE HYDROCHLORIDE. [Concomitant]
     Active Substance: OLOPATADINE HYDROCHLORIDE
     Route: 065
     Dates: start: 20161217, end: 20161222
  68. WYSTAL [Concomitant]
     Active Substance: CEFOPERAZONE SODIUM\SULBACTAM SODIUM
     Indication: BACTERIAL INFECTION
     Route: 065
     Dates: start: 20161220, end: 20161224
  69. PEMETREXED. [Suspect]
     Active Substance: PEMETREXED
     Indication: NON-SMALL CELL LUNG CANCER STAGE IV
     Dosage: MOST RECENT DOSE 858 MG ON 16/NOV/2016
     Route: 042
     Dates: start: 20161116
  70. LOXOPROFEN SODIUM HYDRATE [Concomitant]
     Active Substance: LOXOPROFEN SODIUM DIHYDRATE
     Indication: PYREXIA
     Route: 065
     Dates: start: 20161129, end: 20161201
  71. RABEPRAZOLE [Concomitant]
     Active Substance: RABEPRAZOLE
     Indication: GASTRITIS PROPHYLAXIS
     Route: 065
     Dates: start: 20161117, end: 20161118
  72. MAGNESIUM OXIDE. [Concomitant]
     Active Substance: MAGNESIUM OXIDE
     Indication: CONSTIPATION
     Route: 065
     Dates: start: 20161117, end: 20161202
  73. NEW LECICARBON [Concomitant]
     Active Substance: SODIUM BICARBONATE\SODIUM PHOSPHATE, MONOBASIC
     Indication: CONSTIPATION
     Route: 065
     Dates: start: 20161118, end: 20161118
  74. METOCLOPRAMIDE HYDROCHLORIDE. [Concomitant]
     Active Substance: METOCLOPRAMIDE HYDROCHLORIDE
     Route: 065
     Dates: start: 20170115, end: 20170115
  75. KCL [Concomitant]
     Active Substance: POTASSIUM CHLORIDE
     Indication: HYPOKALAEMIA
     Dosage: PREVENTION OF HYPOKALEMIA
     Route: 065
     Dates: start: 20161212, end: 20161222
  76. GLUCOSE [Concomitant]
     Active Substance: DEXTROSE
     Route: 065
     Dates: start: 20161212, end: 20161220
  77. GLUCOSE [Concomitant]
     Active Substance: DEXTROSE
     Route: 065
     Dates: start: 20161225, end: 20170104
  78. HUMAN SERUM ALBUMIN [Concomitant]
     Active Substance: ALBUMIN HUMAN
     Indication: HYPOALBUMINAEMIA
     Route: 065
     Dates: start: 20161203, end: 20161204
  79. HUMAN SERUM ALBUMIN [Concomitant]
     Active Substance: ALBUMIN HUMAN
     Route: 065
     Dates: start: 20170102, end: 20170102
  80. HUMAN SERUM ALBUMIN [Concomitant]
     Active Substance: ALBUMIN HUMAN
     Route: 065
     Dates: start: 20170116, end: 20170116
  81. LEUKOCYTE REDUCED RED BLOOD CELLS [Concomitant]
     Dosage: IRRADIATED
     Route: 065
     Dates: start: 20170107, end: 20170107
  82. LEUKOCYTE REDUCED RED BLOOD CELLS [Concomitant]
     Dosage: IRRADIATED
     Route: 065
     Dates: start: 20161203, end: 20161205
  83. URSODEOXYCHOLIC ACID [Concomitant]
     Active Substance: URSODIOL
     Indication: LIVER INJURY
     Route: 065
     Dates: start: 20161217, end: 20161225
  84. SODIUM PICOSULFATE [Concomitant]
     Active Substance: SODIUM PICOSULFATE
     Indication: CONSTIPATION
     Route: 065
     Dates: start: 20170113, end: 20170113
  85. IRRADIATED RED BLOOD CELLS?LEUKOCYTES REDUCED [Concomitant]
     Active Substance: HUMAN RED BLOOD CELL
     Indication: ANAEMIA
     Route: 065
     Dates: start: 20170112, end: 20170112
  86. ELNEOPA [Concomitant]
     Active Substance: UNSPECIFIED INGREDIENT
     Route: 065
     Dates: start: 20161208, end: 20161211
  87. AMLODIPINE BESILATE [Concomitant]
     Active Substance: AMLODIPINE BESYLATE
     Indication: HYPERTENSION
     Dosage: BP CONTROL
     Route: 065
     Dates: start: 20161209, end: 20161219
  88. DINOPROST [Concomitant]
     Active Substance: DINOPROST
     Route: 065
     Dates: start: 20161213, end: 20161224
  89. SOLDEM 6 [Concomitant]
     Route: 065
     Dates: start: 20161225, end: 20161230
  90. FOLIC ACID. [Concomitant]
     Active Substance: FOLIC ACID
     Route: 065
     Dates: start: 20161101, end: 20170105
  91. OSELTAMIVIR [Concomitant]
     Active Substance: OSELTAMIVIR
     Indication: INFLUENZA
     Route: 065
     Dates: start: 20161129, end: 20161129
  92. TULOBUTEROL [Concomitant]
     Active Substance: TULOBUTEROL
     Indication: CHRONIC OBSTRUCTIVE PULMONARY DISEASE
     Route: 065
     Dates: start: 20161130
  93. ASCORBIC ACID. [Concomitant]
     Active Substance: ASCORBIC ACID
     Route: 065
     Dates: start: 20161202, end: 20161205
  94. DAIPHEN [Concomitant]
     Active Substance: SULFAMETHOXAZOLE\TRIMETHOPRIM
     Indication: ANTIFUNGAL PROPHYLAXIS
     Route: 065
     Dates: start: 20161203
  95. SOLYUGEN [Concomitant]
     Route: 065
     Dates: start: 20161212, end: 20161212
  96. HYDROXYETHYL STARCH [Concomitant]
     Active Substance: HETASTARCH
     Route: 065
     Dates: start: 20161203, end: 20161203
  97. NORADRENALINE [Concomitant]
     Active Substance: NOREPINEPHRINE
     Route: 065
     Dates: start: 20161203, end: 20161204
  98. VITAMEDIN INTRAVENOUS [Concomitant]
     Active Substance: CYANOCOBALAMIN\PYRIDOXINE HYDROCHLORIDE\THIAMINE
     Route: 065
     Dates: start: 20161202, end: 20161205
  99. LEUKOCYTE REDUCED RED BLOOD CELLS [Concomitant]
     Dosage: IRRADIATED
     Route: 065
     Dates: start: 20170114, end: 20170116
  100. URSODEOXYCHOLIC ACID [Concomitant]
     Active Substance: URSODIOL
     Route: 065
     Dates: start: 20161230
  101. SUGAMMADEX SODIUM [Concomitant]
     Active Substance: SUGAMMADEX SODIUM
     Indication: TRACHEOSTOMY
     Route: 065
     Dates: start: 20161222, end: 20161222
  102. MEROPENEM. [Concomitant]
     Active Substance: MEROPENEM
     Indication: PROPHYLAXIS
     Dosage: MEROPENEM HYDRATE
     Route: 065
     Dates: start: 20161225, end: 20170101
  103. MICAFUNGIN SODIUM [Concomitant]
     Active Substance: MICAFUNGIN SODIUM
     Indication: FUNGAEMIA
     Route: 065
     Dates: start: 20170107
  104. MECOBALAMIN [Concomitant]
     Active Substance: METHYLCOBALAMIN
     Route: 065
     Dates: start: 20161101, end: 20161101
  105. LOXOPROFEN SODIUM HYDRATE [Concomitant]
     Active Substance: LOXOPROFEN SODIUM DIHYDRATE
     Indication: PROCEDURAL PAIN
     Route: 065
     Dates: start: 20161006, end: 20161114
  106. SENNOSIDE [Concomitant]
     Active Substance: SENNOSIDES
     Indication: CONSTIPATION
     Route: 065
     Dates: start: 20161118, end: 20161118
  107. SOLDEM 1 [Concomitant]
     Active Substance: DEXTROSE\SODIUM CHLORIDE\SODIUM LACTATE
     Route: 065
     Dates: start: 20161129, end: 20161203
  108. SALBUTAMOL SULFATE [Concomitant]
     Active Substance: ALBUTEROL SULFATE
     Indication: CHRONIC OBSTRUCTIVE PULMONARY DISEASE
     Route: 065
     Dates: start: 20161130, end: 20161202
  109. LANSOPRAZOLE. [Concomitant]
     Active Substance: LANSOPRAZOLE
     Indication: GASTRITIS PROPHYLAXIS
     Route: 065
     Dates: start: 20161202, end: 20161216
  110. DEXMEDETOMIDINE HYDROCHLORIDE. [Concomitant]
     Active Substance: DEXMEDETOMIDINE HYDROCHLORIDE
     Indication: SEDATION
     Route: 065
     Dates: start: 20161203
  111. HYDROXYETHYL STARCH [Concomitant]
     Active Substance: HETASTARCH
     Route: 065
     Dates: start: 20161206, end: 20161206
  112. DOBUTAMINE HYDROCHLORIDE. [Concomitant]
     Active Substance: DOBUTAMINE HYDROCHLORIDE
     Route: 065
     Dates: start: 20161203, end: 20161206
  113. GLUCOSE [Concomitant]
     Active Substance: DEXTROSE
     Route: 065
     Dates: start: 20161227, end: 20170110
  114. HUMAN SERUM ALBUMIN [Concomitant]
     Active Substance: ALBUMIN HUMAN
     Route: 065
     Dates: start: 20161228, end: 20161228
  115. HUMAN SERUM ALBUMIN [Concomitant]
     Active Substance: ALBUMIN HUMAN
     Route: 065
     Dates: start: 20161230, end: 20161230
  116. FRESH FROZEN PLASMA [Concomitant]
     Active Substance: HUMAN PLASMA
     Dosage: LEUKOCYTES REDUCED
     Route: 065
     Dates: start: 20161211, end: 20161211
  117. TAZOPIPE [Concomitant]
     Active Substance: PIPERACILLIN SODIUM\TAZOBACTAM SODIUM
     Indication: BACTERIAL INFECTION
     Dosage: COMBINATION INTRAVENOUS INFUSION
     Route: 042
     Dates: start: 20161213, end: 20161219
  118. OLOPATADINE HYDROCHLORIDE. [Concomitant]
     Active Substance: OLOPATADINE HYDROCHLORIDE
     Indication: DRUG ERUPTION
     Route: 065
     Dates: start: 20161217, end: 20161222
  119. AMPHOTERICIN B. [Concomitant]
     Active Substance: AMPHOTERICIN B
     Indication: FUNGAEMIA
     Route: 065
     Dates: start: 20161227, end: 20170101
  120. MYCOPHENOLATE MOFETIL. [Concomitant]
     Active Substance: MYCOPHENOLATE MOFETIL
     Indication: AUTOIMMUNE HEPATITIS
     Route: 065
     Dates: start: 20160104
  121. SULBACILLIN (JAPAN) [Concomitant]
     Active Substance: AMPICILLIN SODIUM\SULBACTAM SODIUM
     Indication: BACTERAEMIA
     Route: 065
     Dates: start: 20170106, end: 20170111
  122. SODIUM HYALURONATE [Concomitant]
     Active Substance: HYALURONATE SODIUM
     Indication: DRY EYE
     Route: 065
     Dates: start: 20161222
  123. HICALIQ RF [Concomitant]
     Active Substance: CALCIUM GLUCONATE\DEXTROSE\MAGNESIUM SULFATE\POTASSIUM ACETATE\POTASSIUM PHOSPHATE, DIBASIC\ZINC SULFATE
     Route: 065
     Dates: start: 20161230
  124. BUTYRIC ACID [Concomitant]
     Active Substance: BUTYRIC ACID
     Indication: DIARRHOEA
     Route: 065
     Dates: start: 20161221, end: 20170111

REACTIONS (10)
  - Acute kidney injury [Not Recovered/Not Resolved]
  - Influenza [Recovered/Resolved]
  - Leukopenia [Recovered/Resolved]
  - Febrile neutropenia [Recovered/Resolved]
  - Hepatic congestion [Recovered/Resolved]
  - Thrombocytopenia [Recovered/Resolved]
  - Thrombocytopenia [Not Recovered/Not Resolved]
  - Respiratory failure [Fatal]
  - Autoimmune hepatitis [Not Recovered/Not Resolved]
  - Cerebral haemorrhage [Recovered/Resolved with Sequelae]

NARRATIVE: CASE EVENT DATE: 20161129
